FAERS Safety Report 10220509 (Version 3)
Quarter: 2014Q2

REPORT INFORMATION
  Report Type: Spontaneous
  Country: IT (occurrence: IT)
  Receive Date: 20140606
  Receipt Date: 20140624
  Transmission Date: 20141212
  Serious: Yes (Hospitalization, Other)
  Sender: FDA-Public Use
  Company Number: IT-BRISTOL-MYERS SQUIBB COMPANY-20868451

PATIENT
  Age: 31 Year
  Sex: Female
  Weight: 65 kg

DRUGS (7)
  1. ABILIFY TABS 5 MG [Suspect]
     Dosage: CONSUMED 1 BLISTER.
     Route: 048
     Dates: start: 20140222, end: 20140222
  2. RISPERDAL [Suspect]
     Dosage: 1 MG TABLET.?CONSUMED 1 BLISTER.
     Route: 048
     Dates: start: 20140222, end: 20140222
  3. OLANZAPINE [Suspect]
     Dosage: CONSUMED 1 BLISTER
     Route: 048
     Dates: start: 20140222, end: 20140222
  4. SEROQUEL [Concomitant]
     Dosage: TAB
     Route: 048
  5. DEPAKIN [Concomitant]
     Dosage: GASTRO RESISTANT TAB.
     Route: 048
  6. LAMICTAL [Concomitant]
     Dosage: CHEWABLE TAB.
     Route: 048
  7. PROZIN [Concomitant]
     Dosage: 1 DF: 40 MG/ML. ORAL DROPS.
     Route: 048

REACTIONS (4)
  - Drug abuse [Recovering/Resolving]
  - Intentional self-injury [Recovering/Resolving]
  - Sopor [Recovering/Resolving]
  - Coma [Unknown]
